FAERS Safety Report 8881659 (Version 3)
Quarter: 2014Q1

REPORT INFORMATION
  Report Type: Spontaneous
  Country: US (occurrence: US)
  Receive Date: 20121101
  Receipt Date: 20140128
  Transmission Date: 20141002
  Serious: No
  Sender: FDA-Public Use
  Company Number: US-ASTRAZENECA-2012SE80401

PATIENT
  Age: 52 Year
  Sex: Female
  Weight: 53.1 kg

DRUGS (13)
  1. ENTOCORT EC [Suspect]
     Indication: IMPAIRED GASTRIC EMPTYING
     Route: 048
     Dates: start: 2006
  2. NEXIUM [Suspect]
     Indication: GASTROOESOPHAGEAL REFLUX DISEASE
     Route: 048
     Dates: start: 2012, end: 201208
  3. NEXIUM [Suspect]
     Indication: GASTROOESOPHAGEAL REFLUX DISEASE
     Route: 048
     Dates: end: 201311
  4. AMITRIPTYLINE [Suspect]
     Indication: MIGRAINE
     Route: 065
  5. RANITIDINE [Suspect]
     Route: 065
  6. NEURONTIN [Concomitant]
     Indication: FIBROMYALGIA
  7. VICODIN [Concomitant]
     Indication: FIBROMYALGIA
  8. VICODIN [Concomitant]
     Indication: INTERVERTEBRAL DISC DISORDER
  9. BACLOFEN [Concomitant]
     Indication: FIBROMYALGIA
  10. TOPAMAX [Concomitant]
     Indication: FIBROMYALGIA
  11. PROZAC [Concomitant]
     Indication: DEPRESSION
  12. OXYCODONE [Concomitant]
     Indication: PAIN
  13. PROHIBINOL [Concomitant]
     Indication: MIGRAINE

REACTIONS (11)
  - Gastrooesophageal reflux disease [Unknown]
  - Malaise [Unknown]
  - Weight decreased [Unknown]
  - Pain [Unknown]
  - Dysphagia [Unknown]
  - Abdominal pain [Unknown]
  - Gastric disorder [Unknown]
  - Oropharyngeal pain [Unknown]
  - Abdominal pain upper [Unknown]
  - Drug dose omission [Unknown]
  - Intentional drug misuse [Unknown]
